FAERS Safety Report 10064217 (Version 2)
Quarter: 2014Q2

REPORT INFORMATION
  Report Type: Spontaneous
  Country: DE (occurrence: DE)
  Receive Date: 20140408
  Receipt Date: 20140519
  Transmission Date: 20141212
  Serious: Yes (Hospitalization, Other)
  Sender: FDA-Public Use
  Company Number: DE-JNJFOC-20140404323

PATIENT
  Age: 78 Year
  Sex: Male

DRUGS (11)
  1. XARELTO [Suspect]
     Indication: CEREBROVASCULAR ACCIDENT PROPHYLAXIS
     Route: 048
     Dates: start: 20131213
  2. XARELTO [Suspect]
     Indication: CEREBROVASCULAR ACCIDENT PROPHYLAXIS
     Route: 048
     Dates: start: 20131126, end: 20131213
  3. XARELTO [Suspect]
     Indication: ATRIAL FIBRILLATION
     Route: 048
     Dates: start: 20131213
  4. XARELTO [Suspect]
     Indication: ATRIAL FIBRILLATION
     Route: 048
     Dates: start: 20131126, end: 20131213
  5. MARCUMAR [Suspect]
     Indication: PRODUCT USED FOR UNKNOWN INDICATION
     Route: 065
     Dates: end: 20131126
  6. AMINOSALICYLIC ACID [Concomitant]
     Indication: COLITIS
     Route: 065
  7. ALLOBETA [Concomitant]
     Indication: HYPERURICAEMIA
     Route: 065
  8. CELIPROLOL [Concomitant]
     Indication: HYPERTENSION
     Route: 065
  9. TAMSULOSIN [Concomitant]
     Indication: BENIGN PROSTATIC HYPERPLASIA
     Route: 065
  10. PREDNISOLONE [Concomitant]
     Route: 065
  11. OXYCODONE HYDROCHLORIDE [Concomitant]
     Indication: PAIN
     Route: 065

REACTIONS (6)
  - Psychotic disorder [Unknown]
  - Panic attack [Recovered/Resolved]
  - Gastroenteritis norovirus [Recovered/Resolved]
  - Fear of death [Recovered/Resolved]
  - Delusion [Recovered/Resolved]
  - Epistaxis [Recovered/Resolved]
